FAERS Safety Report 5602620-5 (Version None)
Quarter: 2008Q1

REPORT INFORMATION
  Report Type: 
  Country: None (occurrence: None)
  Receive Date: 20080125
  Receipt Date: 20071130
  Transmission Date: 20080703
  Serious: Yes (Other)
  Sender: FDA-Public Use
  Company Number: JP-ROCHE-535749

PATIENT
  Age: 8 Year
  Sex: Female
  Weight: 23 kg

DRUGS (5)
  1. TAMIFLU [Suspect]
     Route: 048
     Dates: start: 20071129, end: 20071129
  2. TAMIFLU [Suspect]
     Route: 048
     Dates: start: 20071130, end: 20071130
  3. MUCODYNE [Concomitant]
     Dosage: DOSE FORM: FINE GRANULE
     Route: 048
     Dates: start: 20071129, end: 20071202
  4. ASVERIN [Concomitant]
     Route: 048
     Dates: start: 20071129, end: 20071202
  5. POLARAMINE [Concomitant]
     Route: 048
     Dates: start: 20071129, end: 20071202

REACTIONS (1)
  - ABNORMAL BEHAVIOUR [None]
